FAERS Safety Report 20676831 (Version 1)
Quarter: 2022Q2

REPORT INFORMATION
  Report Type: Spontaneous
  Country: GB (occurrence: GB)
  Receive Date: 20220406
  Receipt Date: 20220406
  Transmission Date: 20220721
  Serious: Yes (Hospitalization, Other)
  Sender: FDA-Public Use
  Company Number: None

PATIENT
  Age: 79 Year
  Sex: Male
  Weight: 73 kg

DRUGS (8)
  1. OMEPRAZOLE [Suspect]
     Active Substance: OMEPRAZOLE
     Indication: Coronary artery disease
     Dosage: 20MG GASTRO-RESISTANT CAPSULES
     Route: 048
     Dates: start: 20220315, end: 20220316
  2. AMLODIPINE [Concomitant]
     Active Substance: AMLODIPINE BESYLATE
     Dosage: 10MG TABLETS - 1 TABLET ONCE A DAY
     Dates: start: 20220314
  3. BECLOMETHASONE DIPROPIONATE [Concomitant]
     Active Substance: BECLOMETHASONE DIPROPIONATE
     Dosage: USE TWO SPRAYS INTO EACH NOSTRIL TWICE DAILY; WHEN SYMPTOMS CONTROLLED, REDUCE DOSE TO ONE SPRAY
     Dates: start: 20220110
  4. CEPHALEXIN [Concomitant]
     Active Substance: CEPHALEXIN
     Dosage: 500MG TABLETS - ONE CAPSULE TWICE DAILY FOR 7 DAYS
     Dates: start: 20220110
  5. ISOSORBIDE MONONITRATE [Concomitant]
     Active Substance: ISOSORBIDE MONONITRATE
     Dosage: 1 TABLET ONCE A DAY
     Dates: start: 20220112, end: 20220317
  6. LEVOTHYROXINE [Concomitant]
     Active Substance: LEVOTHYROXINE
     Dosage: 25MICROGRAM TABLETS - ONE TABLET DAILY
     Dates: start: 20220309
  7. LEVOTHYROXINE [Concomitant]
     Active Substance: LEVOTHYROXINE
     Dosage: 50MICROGRAM TABLETS - ONE TABLET DAILY
     Dates: start: 20220308, end: 20220309
  8. BETAMETHASONE VALERATE\FUSIDIC ACID [Concomitant]
     Active Substance: BETAMETHASONE VALERATE\FUSIDIC ACID
     Dosage: APPLY TO THE AFFECTED AREAS TWICE DAILY
     Dates: start: 20220314

REACTIONS (2)
  - Hyponatraemia [Recovering/Resolving]
  - Off label use [Recovered/Resolved]

NARRATIVE: CASE EVENT DATE: 20220315
